FAERS Safety Report 10221030 (Version 1)
Quarter: 2014Q1

REPORT INFORMATION
  Report Type: Spontaneous
  Country: US (occurrence: None)
  Receive Date: 20140306
  Receipt Date: 20140306
  Transmission Date: 20141002
  Serious: Yes (Other)
  Sender: FDA-Public Use
  Company Number: 163-21880-13061598

PATIENT
  Age: 62 Year
  Sex: Male
  Weight: 53.52 kg

DRUGS (10)
  1. REVLIMID (LENALIDOMIDE) (25 MILLIGRAM, CAPSULES) [Suspect]
     Indication: PLASMA CELL MYELOMA
     Dosage: 25 MG, 21 IN  28 D, PO?
     Route: 048
     Dates: start: 20130320, end: 20130603
  2. OXYBUTYNIN (OXYBUTYNIN) (UNKNOWN) [Concomitant]
  3. DECADRON (DEXAMETHASONE) (TABLETS) [Concomitant]
  4. ATIVAN (LORAZEPAM) (TABLETS) [Concomitant]
  5. DEPAKOTE (VALPROATE SEMISODIUM) (TABLETS) [Concomitant]
  6. CLINDAMYCIN HCL (CLINDAMYCIN HYDROCHLORIDE) (UNKNOWN) [Concomitant]
  7. RANITIDINE HCL (RANITIDINE HYDROCHLORIDE) (UNKNOWN) [Concomitant]
  8. BACITRACIN PLUS (BACITRACIN) (UNKNOWN) [Concomitant]
  9. MULTIVITAMINS (MULTIVITAMINS) (CAPSULES) [Concomitant]
  10. TERBINAFINE (TERBINAFINE) (CREAM) [Concomitant]

REACTIONS (1)
  - Laboratory test abnormal [None]
